FAERS Safety Report 20093059 (Version 2)
Quarter: 2021Q4

REPORT INFORMATION
  Report Type: Spontaneous
  Country: US (occurrence: US)
  Receive Date: 20211120
  Receipt Date: 20211126
  Transmission Date: 20220303
  Serious: Yes (Other)
  Sender: FDA-Public Use
  Company Number: US-AUROBINDO-AUR-APL-2021-047321

PATIENT
  Age: 51 Year
  Sex: Male

DRUGS (2)
  1. RITONAVIR [Suspect]
     Active Substance: RITONAVIR
     Indication: HIV infection
     Dosage: UNK
     Route: 065
  2. FLUTICASONE PROPIONATE [Interacting]
     Active Substance: FLUTICASONE PROPIONATE
     Indication: Allergic sinusitis
     Dosage: UNK
     Route: 065

REACTIONS (3)
  - Cushing^s syndrome [Recovered/Resolved]
  - Osteonecrosis [Recovered/Resolved]
  - Drug interaction [Unknown]
